FAERS Safety Report 18395755 (Version 1)
Quarter: 2020Q4

REPORT INFORMATION
  Report Type: Report from Study
  Country: US (occurrence: US)
  Receive Date: 20201018
  Receipt Date: 20201018
  Transmission Date: 20210114
  Serious: Yes (Other)
  Sender: FDA-Public Use
  Company Number: US-TORRENT-00010481

PATIENT
  Age: 50 Year
  Sex: Male

DRUGS (1)
  1. ITRACONAZOLE. [Suspect]
     Active Substance: ITRACONAZOLE
     Indication: HISTOPLASMOSIS
     Dosage: 200 MG BID
     Route: 048

REACTIONS (3)
  - Dyspnoea [Recovered/Resolved]
  - Cardiotoxicity [Recovered/Resolved]
  - Oedema [Recovered/Resolved]
